FAERS Safety Report 20543253 (Version 1)
Quarter: 2022Q1

REPORT INFORMATION
  Report Type: Spontaneous
  Country: US (occurrence: US)
  Receive Date: 20220302
  Receipt Date: 20220302
  Transmission Date: 20220423
  Serious: Yes (Disabling, Other)
  Sender: FDA-Public Use
  Company Number: US-GE HEALTHCARE-2022CSU001182

PATIENT
  Age: 56 Year
  Sex: Female

DRUGS (3)
  1. GADOLINIUM [Suspect]
     Active Substance: GADOLINIUM
     Indication: Biopsy kidney
     Dosage: UNK UNK, SINGLE
     Route: 065
  2. GADOLINIUM [Suspect]
     Active Substance: GADOLINIUM
     Indication: Renal artery embolisation
  3. GADOLINIUM [Suspect]
     Active Substance: GADOLINIUM
     Indication: Renal tubular necrosis

REACTIONS (2)
  - Nephrogenic systemic fibrosis [Unknown]
  - Urine analysis abnormal [Unknown]
